FAERS Safety Report 5469532-1 (Version None)
Quarter: 2007Q3

REPORT INFORMATION
  Report Type: 
  Country: None (occurrence: None)
  Receive Date: 20070927
  Receipt Date: 20070921
  Transmission Date: 20080115
  Serious: Yes (Hospitalization)
  Sender: FDA-Public Use
  Company Number: B0487316A

PATIENT
  Age: 9 Year

DRUGS (1)
  1. LAMOTRIGINE [Suspect]
     Route: 065
     Dates: start: 20020101

REACTIONS (2)
  - STEVENS-JOHNSON SYNDROME [None]
  - SYMBLEPHARON [None]
